APPROVED DRUG PRODUCT: GENTAFAIR
Active Ingredient: GENTAMICIN SULFATE
Strength: EQ 3MG BASE/GM
Dosage Form/Route: OINTMENT;OPHTHALMIC
Application: A062443 | Product #001
Applicant: PHARMAFAIR INC
Approved: May 26, 1983 | RLD: No | RS: No | Type: DISCN